FAERS Safety Report 8027394-2 (Version None)
Quarter: 2012Q1

REPORT INFORMATION
  Report Type: 
  Country: None (occurrence: None)
  Receive Date: 20120105
  Receipt Date: 20120105
  Transmission Date: 20120608
  Serious: Yes (Hospitalization)
  Sender: FDA-Public Use
  Company Number: None

PATIENT
  Sex: Male
  Weight: 103.9 kg

DRUGS (2)
  1. DAUNORUBICIN HCL [Suspect]
     Dates: end: 20111027
  2. CYTARABINE [Suspect]
     Dosage: 41220 MG
     Dates: end: 20111222

REACTIONS (12)
  - PHLEBITIS SUPERFICIAL [None]
  - STAPHYLOCOCCAL INFECTION [None]
  - ABSCESS [None]
  - ASTHENIA [None]
  - ARTHRALGIA [None]
  - MEDICAL DEVICE COMPLICATION [None]
  - PYREXIA [None]
  - MYALGIA [None]
  - FEELING HOT [None]
  - BLOOD CULTURE POSITIVE [None]
  - ERYTHEMA [None]
  - CHILLS [None]
